FAERS Safety Report 19410386 (Version 2)
Quarter: 2021Q3

REPORT INFORMATION
  Report Type: Report from Study
  Country: US (occurrence: US)
  Receive Date: 20210614
  Receipt Date: 20210822
  Transmission Date: 20211014
  Serious: Yes (Other)
  Sender: FDA-Public Use
  Company Number: US-BIOGEN-2021BI01020158

PATIENT
  Age: 42 Year
  Sex: Female

DRUGS (1)
  1. TYSABRI [Suspect]
     Active Substance: NATALIZUMAB
     Indication: MULTIPLE SCLEROSIS
     Route: 042
     Dates: start: 20210315

REACTIONS (8)
  - Hypoaesthesia [Not Recovered/Not Resolved]
  - Feeling abnormal [Unknown]
  - Gait inability [Unknown]
  - Nausea [Not Recovered/Not Resolved]
  - Dizziness [Not Recovered/Not Resolved]
  - Multiple sclerosis relapse [Unknown]
  - Feeling of body temperature change [Unknown]
  - Blindness [Recovered/Resolved]

NARRATIVE: CASE EVENT DATE: 20210605
